FAERS Safety Report 14576183 (Version 3)
Quarter: 2018Q2

REPORT INFORMATION
  Report Type: Report from Study
  Country: None (occurrence: US)
  Receive Date: 20180227
  Receipt Date: 20180403
  Transmission Date: 20180711
  Serious: Yes (Hospitalization, Other)
  Sender: FDA-Public Use
  Company Number: US-ABBVIE-18K-163-2265622-00

PATIENT
  Age: 64 Year
  Sex: Male
  Weight: 79.45 kg

DRUGS (3)
  1. HUMIRA [Suspect]
     Active Substance: ADALIMUMAB
     Indication: RHEUMATOID ARTHRITIS
     Route: 058
     Dates: start: 201710
  2. HUMIRA [Suspect]
     Active Substance: ADALIMUMAB
     Indication: PSORIASIS
  3. HUMIRA [Suspect]
     Active Substance: ADALIMUMAB
     Indication: COLITIS ULCERATIVE

REACTIONS (15)
  - Purulence [Recovered/Resolved]
  - Fatigue [Unknown]
  - Hypophagia [Unknown]
  - Polydipsia [Unknown]
  - Peripheral swelling [Recovered/Resolved]
  - Carpal tunnel syndrome [Unknown]
  - Oral candidiasis [Unknown]
  - Dysphagia [Unknown]
  - Myocardial infarction [Recovering/Resolving]
  - Postoperative wound infection [Recovered/Resolved]
  - Sepsis [Recovered/Resolved]
  - Fungal infection [Unknown]
  - Erythema [Recovered/Resolved]
  - Postoperative wound infection [Recovered/Resolved]
  - Dizziness [Unknown]

NARRATIVE: CASE EVENT DATE: 2018
